FAERS Safety Report 22225303 (Version 1)
Quarter: 2023Q2

REPORT INFORMATION
  Report Type: Spontaneous
  Country: US (occurrence: US)
  Receive Date: 20230418
  Receipt Date: 20230418
  Transmission Date: 20230722
  Serious: No
  Sender: FDA-Public Use
  Company Number: PVI-US-2022-014132

PATIENT
  Sex: Male

DRUGS (3)
  1. LEVOTHYROXINE SODIUM [Suspect]
     Active Substance: LEVOTHYROXINE SODIUM
     Indication: Product used for unknown indication
     Dosage: 75 ?G, ONCE DAILY
     Route: 048
  2. ENTRESTO [Suspect]
     Active Substance: SACUBITRIL\VALSARTAN
     Indication: Product used for unknown indication
     Dosage: 24/26 MG, TWICE A DAY
     Route: 048
     Dates: start: 202112
  3. WARFARIN [Suspect]
     Active Substance: WARFARIN
     Indication: Product used for unknown indication
     Dosage: UNK
     Route: 065

REACTIONS (8)
  - Dizziness [Unknown]
  - Hypotension [Unknown]
  - Stent placement [Unknown]
  - Dyspnoea [Unknown]
  - Limb discomfort [Unknown]
  - Catheterisation cardiac [Unknown]
  - Weight decreased [Unknown]
  - Wrong technique in product usage process [Unknown]
